FAERS Safety Report 5460181-8 (Version None)
Quarter: 2007Q3

REPORT INFORMATION
  Report Type: 
  Country: None (occurrence: None)
  Receive Date: 20070919
  Receipt Date: 20070530
  Transmission Date: 20080115
  Serious: No
  Sender: FDA-Public Use
  Company Number: US-ASTRAZENECA-2007UW13250

PATIENT
  Age: 20 Year
  Sex: Female
  Weight: 111.6 kg

DRUGS (4)
  1. SEROQUEL [Suspect]
     Indication: INSOMNIA
     Dates: start: 20070101, end: 20070526
  2. SEROQUEL [Suspect]
     Indication: BIPOLAR I DISORDER
     Dates: start: 20070101, end: 20070526
  3. SEROQUEL [Suspect]
     Indication: BORDERLINE PERSONALITY DISORDER
     Dates: start: 20070101, end: 20070526
  4. LEXAPRO [Concomitant]

REACTIONS (5)
  - HEART RATE INCREASED [None]
  - INSOMNIA [None]
  - PALPITATIONS [None]
  - VOMITING [None]
  - WEIGHT INCREASED [None]
